FAERS Safety Report 8362379-8 (Version None)
Quarter: 2012Q2

REPORT INFORMATION
  Report Type: 
  Country: None (occurrence: None)
  Receive Date: 20120516
  Receipt Date: 20120507
  Transmission Date: 20120825
  Serious: No
  Sender: FDA-Public Use
  Company Number: US-BIOGENIDEC-2012BI004964

PATIENT
  Sex: Female

DRUGS (1)
  1. TYSABRI [Suspect]
     Indication: MULTIPLE SCLEROSIS
     Route: 042
     Dates: start: 20070717

REACTIONS (6)
  - MOUTH ULCERATION [None]
  - NASOPHARYNGITIS [None]
  - NEURALGIA [None]
  - COUGH [None]
  - PRURITUS [None]
  - TOOTHACHE [None]
